FAERS Safety Report 6073857-9 (Version None)
Quarter: 2009Q1

REPORT INFORMATION
  Report Type: 
  Country: None (occurrence: None)
  Receive Date: 20090209
  Receipt Date: 20090209
  Transmission Date: 20090719
  Serious: Yes (Other)
  Sender: FDA-Public Use
  Company Number: None

PATIENT
  Age: 41 Year
  Sex: Female
  Weight: 95.2554 kg

DRUGS (1)
  1. YAZ [Suspect]
     Indication: MENORRHAGIA
     Dosage: 1 TAB DAILY PO
     Route: 048
     Dates: start: 20090131, end: 20090203

REACTIONS (5)
  - BLOOD PRESSURE INCREASED [None]
  - FEAR [None]
  - NERVOUSNESS [None]
  - PALPITATIONS [None]
  - PANIC REACTION [None]
